FAERS Safety Report 8116577-9 (Version None)
Quarter: 2012Q1

REPORT INFORMATION
  Report Type: 
  Country: None (occurrence: None)
  Receive Date: 20120131
  Receipt Date: 20120116
  Transmission Date: 20120608
  Serious: Yes (Hospitalization)
  Sender: FDA-Public Use
  Company Number: 2009-0639

PATIENT
  Age: 11 Year
  Sex: Male
  Weight: 24.6 kg

DRUGS (1)
  1. INCRELEX [Suspect]
     Indication: BODY HEIGHT BELOW NORMAL
     Dosage: 240 UG/KG (120 UG/KG,2 IN 1 D),SUBCUTANEOUS
     Route: 058
     Dates: start: 19980218

REACTIONS (4)
  - ABDOMINAL PAIN LOWER [None]
  - BACK PAIN [None]
  - NEPHROLITHIASIS [None]
  - PYREXIA [None]
